FAERS Safety Report 5208986-2 (Version None)
Quarter: 2007Q1

REPORT INFORMATION
  Report Type: 
  Country: None (occurrence: None)
  Receive Date: 20070116
  Receipt Date: 20070110
  Transmission Date: 20070707
  Serious: Yes (Hospitalization)
  Sender: FDA-Public Use
  Company Number: KR-GLAXOSMITHKLINE-B0453633A

PATIENT
  Age: 35 Year

DRUGS (3)
  1. PLACEBO [Suspect]
  2. ZOFRAN [Suspect]
     Dosage: 8MG PER DAY
     Route: 048
  3. DEXAMETHASONE [Suspect]
     Dosage: 8MG PER DAY
     Route: 042

REACTIONS (1)
  - VOMITING [None]
